FAERS Safety Report 9011504 (Version 2)
Quarter: 2013Q1

REPORT INFORMATION
  Report Type: Spontaneous
  Country: US (occurrence: US)
  Receive Date: 20130108
  Receipt Date: 20130114
  Transmission Date: 20140127
  Serious: Yes (Death, Hospitalization, Other)
  Sender: FDA-Public Use
  Company Number: PHEH2013US000679

PATIENT
  Age: 78 Year
  Sex: Female
  Weight: 78.8 kg

DRUGS (14)
  1. TASIGNA [Suspect]
     Indication: CHRONIC MYELOID LEUKAEMIA
     Dosage: 200 MG, DAILY
     Route: 048
     Dates: start: 20110808
  2. ALEVE [Concomitant]
     Indication: PAIN
     Dosage: 1 DF, AS NEEDED
     Route: 048
  3. ANAGRELIDE HCL [Concomitant]
     Dosage: 0.5 MG, BID
     Route: 048
  4. ASPIRIN [Concomitant]
     Dosage: 81 MG, QD
     Route: 048
  5. BELLADONNA [Concomitant]
     Dosage: 1 DF, AS NEEDED
  6. CENTRUM [Concomitant]
     Dosage: 1 DF, QD
     Route: 048
  7. HYDROCODONE BITARTRATE [Concomitant]
     Dosage: 1 MG, Q12H
     Route: 048
  8. PLAVIX [Concomitant]
     Dosage: 75 MG, QD
     Route: 048
  9. SYNTHROID [Concomitant]
     Dosage: 125 UG, QD
     Route: 048
  10. INTERFERON [Concomitant]
  11. CYTARABINE [Concomitant]
  12. HYDREA [Concomitant]
  13. DECITABINE [Concomitant]
  14. ERLOTINIB [Concomitant]

REACTIONS (11)
  - Death [Fatal]
  - Pneumonia [Unknown]
  - Back pain [Unknown]
  - Non-small cell lung cancer [Unknown]
  - Second primary malignancy [Unknown]
  - Metastasis [Unknown]
  - Compression fracture [Unknown]
  - Delirium [Unknown]
  - Fall [Unknown]
  - Dizziness [Unknown]
  - Dyspnoea [Unknown]
